FAERS Safety Report 4853304-2 (Version None)
Quarter: 2005Q4

REPORT INFORMATION
  Report Type: 
  Country: None (occurrence: None)
  Receive Date: 20051214
  Receipt Date: 20051213
  Transmission Date: 20060501
  Serious: Yes (Hospitalization)
  Sender: FDA-Public Use
  Company Number: US-GLAXOSMITHKLINE-A0585713A

PATIENT
  Age: 66 Year
  Sex: Female

DRUGS (2)
  1. ADVAIR DISKUS 250/50 [Suspect]
     Indication: ASTHMA
     Dosage: 1PUFF PER DAY
     Route: 055
     Dates: start: 20050914, end: 20050914
  2. NO CONCURRENT MEDICATION [Concomitant]

REACTIONS (10)
  - CHILLS [None]
  - DIZZINESS [None]
  - DYSPNOEA [None]
  - FALL [None]
  - HEADACHE [None]
  - HYPERTENSION [None]
  - INCONTINENCE [None]
  - LOSS OF CONSCIOUSNESS [None]
  - NAUSEA [None]
  - VOMITING [None]
